FAERS Safety Report 14116983 (Version 1)
Quarter: 2017Q4

REPORT INFORMATION
  Report Type: Spontaneous
  Country: US (occurrence: US)
  Receive Date: 20171023
  Receipt Date: 20171023
  Transmission Date: 20180321
  Serious: Yes (Other)
  Sender: FDA-Public Use
  Company Number: US-NAPPMUNDI-USA-2017-0140502

PATIENT
  Sex: Male

DRUGS (1)
  1. OXYCODONE HYDROCHLORIDE (SIMILAR TO NDA 22-272) [Suspect]
     Active Substance: OXYCODONE HYDROCHLORIDE
     Indication: DRUG USE DISORDER
     Dosage: UNK
     Route: 048

REACTIONS (10)
  - Overdose [Recovered/Resolved]
  - Drug dependence [Recovering/Resolving]
  - Euphoric mood [Unknown]
  - Drug abuse [Recovering/Resolving]
  - Asthenia [Unknown]
  - Affective disorder [Unknown]
  - Malaise [Unknown]
  - Hot flush [Unknown]
  - Cold sweat [Unknown]
  - Drug withdrawal syndrome [Unknown]
